FAERS Safety Report 19053151 (Version 1)
Quarter: 2021Q1

REPORT INFORMATION
  Report Type: Spontaneous
  Country: US (occurrence: US)
  Receive Date: 20210324
  Receipt Date: 20210324
  Transmission Date: 20210420
  Serious: No
  Sender: FDA-Public Use
  Company Number: US-ASTRAZENECA-2021A087838

PATIENT
  Sex: Female
  Weight: 62.7 kg

DRUGS (1)
  1. SYMBICORT [Suspect]
     Active Substance: BUDESONIDE\FORMOTEROL FUMARATE DIHYDRATE
     Indication: CHRONIC OBSTRUCTIVE PULMONARY DISEASE
     Dosage: 80 OF 4.5 MCG 2 PUFFS TWICE A DAY
     Route: 055

REACTIONS (3)
  - Hypoacusis [Not Recovered/Not Resolved]
  - Weight increased [Not Recovered/Not Resolved]
  - Chronic obstructive pulmonary disease [Unknown]
